FAERS Safety Report 15557276 (Version 2)
Quarter: 2018Q4

REPORT INFORMATION
  Report Type: Spontaneous
  Country: JP (occurrence: JP)
  Receive Date: 20181026
  Receipt Date: 20181119
  Transmission Date: 20190205
  Serious: Yes (Life-Threatening, Hospitalization, Other)
  Sender: FDA-Public Use
  Company Number: JP-ALSI-201800576

PATIENT
  Age: 31 Year
  Sex: Male

DRUGS (1)
  1. OXYGEN. [Suspect]
     Active Substance: OXYGEN
     Indication: CARBON MONOXIDE POISONING
     Route: 055

REACTIONS (2)
  - Pulmonary oedema [Recovered/Resolved]
  - Generalised tonic-clonic seizure [Recovered/Resolved]
